FAERS Safety Report 4610431-2 (Version None)
Quarter: 2005Q2

REPORT INFORMATION
  Report Type: 
  Country: None (occurrence: None)
  Receive Date: 20050301
  Receipt Date: 20041213
  Transmission Date: 20051028
  Serious: No
  Sender: FDA-Public Use
  Company Number: WAES0412USA01567

PATIENT
  Age: 69 Year
  Sex: Male

DRUGS (10)
  1. ZETIA [Suspect]
     Indication: BLOOD CHOLESTEROL INCREASED
     Dosage: 10 MG/DAILY
     Dates: start: 20041101
  2. ACCUPRIL [Concomitant]
  3. ACTOS [Concomitant]
  4. DILTIAZEM CD [Concomitant]
  5. MICARDIS [Concomitant]
  6. ALLOPURINOL [Concomitant]
  7. AMILORIDE HYDROCHLORIDE [Concomitant]
  8. CLONIDINE [Concomitant]
  9. DICLOFENAC SODIUM [Concomitant]
  10. METFORMIN [Concomitant]

REACTIONS (1)
  - BLOOD GLUCOSE INCREASED [None]
